FAERS Safety Report 5671582-7 (Version None)
Quarter: 2008Q1

REPORT INFORMATION
  Report Type: 
  Country: None (occurrence: None)
  Receive Date: 20080313
  Receipt Date: 20080306
  Transmission Date: 20080703
  Serious: Yes (Hospitalization)
  Sender: FDA-Public Use
  Company Number: MSTR-UK-0803S-0010

PATIENT
  Age: 58 Year
  Sex: Male

DRUGS (4)
  1. METASTRON [Suspect]
     Indication: DRUG USE FOR UNKNOWN INDICATION
     Dates: start: 20080117, end: 20080117
  2. TAXOTERE [Concomitant]
  3. ZOMETA [Concomitant]
  4. PREDNISOLONE [Concomitant]

REACTIONS (1)
  - ANAEMIA [None]
